FAERS Safety Report 8559121-4 (Version None)
Quarter: 2012Q3

REPORT INFORMATION
  Report Type: 
  Country: None (occurrence: None)
  Receive Date: 20120802
  Receipt Date: 20120723
  Transmission Date: 20120928
  Serious: No
  Sender: FDA-Public Use
  Company Number: US-BIOGENIDEC-2012BI027612

PATIENT
  Sex: Female

DRUGS (3)
  1. AVONEX [Suspect]
     Indication: MULTIPLE SCLEROSIS
     Route: 030
     Dates: start: 20030107, end: 20030101
  2. AMPYRA [Concomitant]
     Indication: GAIT DISTURBANCE
  3. AVONEX [Suspect]
     Route: 030
     Dates: start: 20030101, end: 20100722

REACTIONS (5)
  - FATIGUE [None]
  - DRUG INEFFECTIVE [None]
  - PAIN [None]
  - ASTHENIA [None]
  - GAIT DISTURBANCE [None]
